FAERS Safety Report 17156747 (Version 1)
Quarter: 2019Q4

REPORT INFORMATION
  Report Type: Spontaneous
  Country: ES (occurrence: ES)
  Receive Date: 20191216
  Receipt Date: 20191216
  Transmission Date: 20200122
  Serious: Yes (Hospitalization)
  Sender: FDA-Public Use
  Company Number: ES-B.I. PHARMACEUTICALS,INC./RIDGEFIELD-2019-12-119050

PATIENT
  Age: 74 Year
  Sex: Male
  Weight: 70.4 kg

DRUGS (9)
  1. ZINNAT [CEFUROXIME AXETIL] [Concomitant]
     Active Substance: CEFUROXIME
     Indication: URINARY TRACT INFECTION
     Dosage: 1 TABLET EVERY 12 HOURS FOR 7 DAYS
     Route: 065
     Dates: start: 20191005, end: 20191008
  2. CEFUROXIMA [CEFUROXIME] [Concomitant]
     Indication: URINARY TRACT INFECTION
     Dosage: 1 TABLET EVERY 12 HOURS FOR 3 DAYS
     Route: 065
     Dates: start: 20191016, end: 20191018
  3. LORAZEPAM. [Concomitant]
     Active Substance: LORAZEPAM
     Indication: INSOMNIA
     Dosage: 1 TABLET EVERY DAY
     Route: 048
     Dates: start: 20181010
  4. SYNJARDY [Suspect]
     Active Substance: EMPAGLIFLOZIN\METFORMIN HYDROCHLORIDE
     Indication: DIABETES MELLITUS
     Dosage: 1 TABLET EVERY 12 HOURS; FORM STRENGTH: 12,5MG/1000MG
     Route: 048
     Dates: start: 20181010
  5. LEVOFLOXACINO [LEVOFLOXACIN] [Concomitant]
     Active Substance: LEVOFLOXACIN
     Indication: BENIGN PROSTATIC HYPERPLASIA
     Dosage: 1 TABLET EVERY DAY FOR 21 DAYS
     Route: 065
     Dates: start: 20191008, end: 20191028
  6. ROSUVASTATINA [ROSUVASTATIN] [Concomitant]
     Active Substance: ROSUVASTATIN
     Indication: HYPERCHOLESTEROLAEMIA
     Dosage: 1 TABLET EVERY DAY
     Route: 048
     Dates: start: 20190424
  7. INREQ [Concomitant]
     Indication: BENIGN PROSTATIC HYPERPLASIA
     Dosage: 1 TABLET EVERY DAY
     Route: 048
     Dates: start: 20191008
  8. RAMIPRIL. [Concomitant]
     Active Substance: RAMIPRIL
     Indication: ACUTE MYOCARDIAL INFARCTION
     Dosage: 0.5 TABLET EVERY DAY
     Route: 048
     Dates: start: 20181010
  9. BISOPROLOL TEVA [Concomitant]
     Active Substance: BISOPROLOL
     Indication: ACUTE MYOCARDIAL INFARCTION
     Dosage: 1 TABLET IN THE MORNING
     Route: 048
     Dates: start: 20190125

REACTIONS (3)
  - Urinary tract infection [Recovering/Resolving]
  - Penile abscess [Recovering/Resolving]
  - Blood culture positive [Recovering/Resolving]

NARRATIVE: CASE EVENT DATE: 20191007
